FAERS Safety Report 6718934-1 (Version None)
Quarter: 2010Q2

REPORT INFORMATION
  Report Type: 
  Country: None (occurrence: None)
  Receive Date: 20100511
  Receipt Date: 20100504
  Transmission Date: 20101027
  Serious: Yes (Disabling, Other)
  Sender: FDA-Public Use
  Company Number: FR-JNJFOC-20100405438

PATIENT
  Age: 79 Year
  Sex: Female

DRUGS (1)
  1. TAVANIC [Suspect]
     Indication: LUNG DISORDER
     Route: 042

REACTIONS (1)
  - DEAFNESS [None]
